FAERS Safety Report 13267966 (Version 1)
Quarter: 2017Q1

REPORT INFORMATION
  Report Type: Spontaneous
  Country: US (occurrence: US)
  Receive Date: 20170224
  Receipt Date: 20170224
  Transmission Date: 20170428
  Serious: Yes (Hospitalization)
  Sender: FDA-Public Use
  Company Number: None

PATIENT
  Age: 87 Year
  Sex: Male

DRUGS (7)
  1. POLYETH [Concomitant]
  2. TOLTERODINE [Concomitant]
     Active Substance: TOLTERODINE
  3. LOPERAMIDE [Concomitant]
     Active Substance: LOPERAMIDE
  4. CAPECITABINE 500MG [Suspect]
     Active Substance: CAPECITABINE
     Indication: RECTAL CANCER
     Dosage: 3 TABLETS BID PO
     Route: 048
     Dates: start: 20161223, end: 20170223
  5. SIMVASTATIN. [Concomitant]
     Active Substance: SIMVASTATIN
  6. BACLOFEN. [Concomitant]
     Active Substance: BACLOFEN
  7. CLOPIDOGREL [Concomitant]
     Active Substance: CLOPIDOGREL BISULFATE

REACTIONS (1)
  - Therapy cessation [None]
